FAERS Safety Report 20679397 (Version 3)
Quarter: 2023Q2

REPORT INFORMATION
  Report Type: Report from Study
  Country: GB (occurrence: GB)
  Receive Date: 20220406
  Receipt Date: 20230518
  Transmission Date: 20230721
  Serious: Yes (Hospitalization, Other)
  Sender: FDA-Public Use
  Company Number: GB-TAKEDA-GB201513897

PATIENT
  Age: 10 Year
  Sex: Male

DRUGS (3)
  1. IDURSULFASE [Suspect]
     Active Substance: IDURSULFASE
     Indication: Mucopolysaccharidosis II
     Dosage: 0.5 MILLIGRAM/KILOGRAM, 1/WEEK
     Route: 042
     Dates: start: 20070404
  2. IDURSULFASE [Suspect]
     Active Substance: IDURSULFASE
     Dosage: 0.43 MILLIGRAM/KILOGRAM, 1/WEEK
     Route: 042
     Dates: start: 20130320, end: 20150303
  3. IDURSULFASE [Suspect]
     Active Substance: IDURSULFASE
     Dosage: 0.46 MILLIGRAM/KILOGRAM, 1/WEEK
     Route: 042
     Dates: start: 20160901

REACTIONS (1)
  - Tendon discomfort [Recovered/Resolved]

NARRATIVE: CASE EVENT DATE: 20130806
